FAERS Safety Report 6904199-4 (Version None)
Quarter: 2010Q3

REPORT INFORMATION
  Report Type: 
  Country: None (occurrence: None)
  Receive Date: 20100804
  Receipt Date: 20090330
  Transmission Date: 20110219
  Serious: No
  Sender: FDA-Public Use
  Company Number: US-PFIZER INC-2009166383

PATIENT
  Sex: Male
  Weight: 93 kg

DRUGS (6)
  1. LYRICA [Suspect]
     Indication: NEUROPATHY PERIPHERAL
     Dosage: 75 MG, 2X/DAY
     Dates: start: 20090207
  2. WARFARIN SODIUM [Concomitant]
     Dosage: 5 MG, UNK
  3. ACIPHEX [Concomitant]
     Dosage: 20 MG, UNK
  4. LIPITOR [Concomitant]
     Dosage: 40 MG, UNK
  5. MONTELUKAST SODIUM [Concomitant]
     Dosage: 10 MG, UNK
  6. ALLEGRA [Concomitant]
     Indication: HYPERSENSITIVITY
     Dosage: 180 MG, UNK

REACTIONS (1)
  - TINNITUS [None]
